FAERS Safety Report 9849813 (Version 1)
Quarter: 2014Q1

REPORT INFORMATION
  Report Type: Spontaneous
  Country: US (occurrence: None)
  Receive Date: 20140124
  Receipt Date: 20140124
  Transmission Date: 20141002
  Serious: Yes (Other)
  Sender: FDA-Public Use
  Company Number: None

PATIENT
  Age: 48 Year
  Sex: Male
  Weight: 70.31 kg

DRUGS (1)
  1. TAMIFLU [Suspect]
     Indication: INFLUENZA
     Dosage: 1 CAPSULE  TWICE DAILY ORALLY
     Route: 048
     Dates: start: 20140121, end: 20140122

REACTIONS (3)
  - Vomiting [None]
  - Hallucination [None]
  - Nightmare [None]
